FAERS Safety Report 9486625 (Version 2)
Quarter: 2014Q2

REPORT INFORMATION
  Report Type: Spontaneous
  Country: BR (occurrence: BR)
  Receive Date: 20130829
  Receipt Date: 20140610
  Transmission Date: 20141212
  Serious: Yes (Life-Threatening, Other)
  Sender: FDA-Public Use
  Company Number: BR-PFIZER INC-2013244904

PATIENT
  Age: 32 Year
  Sex: Female
  Weight: 59 kg

DRUGS (2)
  1. DEPO-PROVERA [Suspect]
     Indication: CONTRACEPTION
     Dosage: 150 MG, UNK
     Dates: start: 201302, end: 201305
  2. ACETAMINOPHEN [Concomitant]
     Indication: MYALGIA

REACTIONS (3)
  - Complication of pregnancy [Recovered/Resolved]
  - Drug ineffective [Unknown]
  - Unintended pregnancy [Unknown]
